FAERS Safety Report 21092698 (Version 5)
Quarter: 2023Q1

REPORT INFORMATION
  Report Type: Spontaneous
  Country: JP (occurrence: JP)
  Receive Date: 20220718
  Receipt Date: 20230201
  Transmission Date: 20230417
  Serious: Yes (Hospitalization, Other)
  Sender: FDA-Public Use
  Company Number: JP-ONO-2022JP019361

PATIENT
  Age: 75 Year
  Sex: Male
  Weight: 54 kg

DRUGS (10)
  1. OPDIVO [Suspect]
     Active Substance: NIVOLUMAB
     Indication: Gastric cancer
     Route: 041
     Dates: start: 20220530, end: 20220530
  2. OPDIVO [Suspect]
     Active Substance: NIVOLUMAB
  3. OXALIPLATIN [Suspect]
     Active Substance: OXALIPLATIN
     Indication: Gastric cancer
     Dosage: 125 UNK
     Route: 041
     Dates: start: 20220411, end: 20220530
  4. GIMERACIL\OTERACIL\TEGAFUR [Suspect]
     Active Substance: GIMERACIL\OTERACIL\TEGAFUR
     Indication: Gastric cancer
     Dosage: UNK
     Route: 048
     Dates: start: 20220411, end: 20220614
  5. FOSAPREPITANT [Suspect]
     Active Substance: FOSAPREPITANT
     Indication: Prophylaxis of nausea and vomiting
     Route: 041
     Dates: start: 20220502, end: 20220530
  6. ANAMORELIN HYDROCHLORIDE [Suspect]
     Active Substance: ANAMORELIN HYDROCHLORIDE
     Indication: Cachexia
     Route: 048
     Dates: start: 20220523
  7. PALONOSETRON [Suspect]
     Active Substance: PALONOSETRON
     Indication: Prophylaxis
     Dosage: DRUG CUMULATIVE DOSAGE NUMBER 37.5 MG
     Route: 041
     Dates: start: 20220411, end: 20220530
  8. DEXAMETHASONE SODIUM PHOSPHATE [Concomitant]
     Active Substance: DEXAMETHASONE SODIUM PHOSPHATE
     Indication: Prophylaxis
     Route: 041
     Dates: start: 20220411
  9. DECADRON [Concomitant]
     Active Substance: DEXAMETHASONE
     Indication: Prophylaxis
     Route: 048
     Dates: start: 20220411, end: 20220602
  10. ZYPREXA [Concomitant]
     Active Substance: OLANZAPINE
     Indication: Prophylaxis
     Route: 048
     Dates: start: 20220411, end: 20220602

REACTIONS (6)
  - Muscular weakness [Recovered/Resolved]
  - Vitamin B1 deficiency [Unknown]
  - Vitamin B12 deficiency [Unknown]
  - Gait disturbance [Recovering/Resolving]
  - Hepatic function abnormal [Recovering/Resolving]
  - Oedema peripheral [Recovering/Resolving]

NARRATIVE: CASE EVENT DATE: 20220620
